FAERS Safety Report 14407283 (Version 2)
Quarter: 2018Q2

REPORT INFORMATION
  Report Type: Spontaneous
  Country: SE (occurrence: SE)
  Receive Date: 20180118
  Receipt Date: 20180417
  Transmission Date: 20180711
  Serious: Yes (Other)
  Sender: FDA-Public Use
  Company Number: SE-TEVA-2018-SE-847275

PATIENT
  Age: 53 Year
  Sex: Female

DRUGS (5)
  1. FURIX RETARD [Concomitant]
     Active Substance: FUROSEMIDE
  2. AMLODIPINE [Suspect]
     Active Substance: AMLODIPINE BESYLATE
     Indication: HYPERTENSION
     Dosage: 5 MILLIGRAM DAILY;
     Route: 048
     Dates: start: 20171115, end: 20171127
  3. LEVAXIN [Concomitant]
     Active Substance: LEVOTHYROXINE SODIUM
  4. TRANDATE [Concomitant]
     Active Substance: LABETALOL HYDROCHLORIDE
  5. ESTRADERM [Concomitant]
     Active Substance: ESTRADIOL

REACTIONS (3)
  - Tongue pruritus [Recovered/Resolved]
  - Pharyngeal oedema [Recovered/Resolved]
  - Swelling face [Recovered/Resolved]

NARRATIVE: CASE EVENT DATE: 20171126
